FAERS Safety Report 18189351 (Version 1)
Quarter: 2020Q3

REPORT INFORMATION
  Report Type: Spontaneous
  Country: US (occurrence: US)
  Receive Date: 20200824
  Receipt Date: 20200824
  Transmission Date: 20201103
  Serious: No
  Sender: FDA-Public Use
  Company Number: US-PAIPHARMA-2020-US-005667

PATIENT
  Age: 86 Year
  Sex: Male
  Weight: 78.02 kg

DRUGS (1)
  1. LACTULOSE SOLUTION USP, AF [Suspect]
     Active Substance: LACTULOSE
     Indication: CONSTIPATION
     Dosage: THREE TEASPOONS PO
     Route: 048
     Dates: start: 20200306, end: 20200306

REACTIONS (2)
  - Product residue present [Recovering/Resolving]
  - Anorectal discomfort [Recovering/Resolving]
